FAERS Safety Report 18887741 (Version 2)
Quarter: 2021Q2

REPORT INFORMATION
  Report Type: Spontaneous
  Country: US (occurrence: US)
  Receive Date: 20210213
  Receipt Date: 20210508
  Transmission Date: 20210717
  Serious: No
  Sender: FDA-Public Use
  Company Number: US-SA-2021SA040752

PATIENT
  Sex: Female

DRUGS (9)
  1. CEFALEXIN [Concomitant]
     Active Substance: CEPHALEXIN
     Dosage: 500 MG
  2. OPIUM [MORPHINE] [Concomitant]
     Active Substance: MORPHINE
     Dosage: 10 MG/ML
  3. OPIUM TINCTURE [Concomitant]
     Active Substance: MORPHINE
     Dosage: 10 MG/ML
  4. RIZATRIPTAN. [Concomitant]
     Active Substance: RIZATRIPTAN
     Dosage: 10 MG
  5. AUBAGIO [Suspect]
     Active Substance: TERIFLUNOMIDE
     Indication: MULTIPLE SCLEROSIS
     Dosage: 14 MG, QD
     Route: 048
  6. LEVOTHYROXIN [Concomitant]
     Active Substance: LEVOTHYROXINE
     Dosage: 25 UG
  7. AZATHIOPRINE. [Concomitant]
     Active Substance: AZATHIOPRINE
     Dosage: 50 MG
  8. COLESTIPOL [Concomitant]
     Active Substance: COLESTIPOL
     Dosage: 1 G
  9. TIZANIDINE. [Concomitant]
     Active Substance: TIZANIDINE
     Dosage: 2 MG

REACTIONS (2)
  - Product dose omission issue [Unknown]
  - Memory impairment [Unknown]
